FAERS Safety Report 25571319 (Version 1)
Quarter: 2025Q3

REPORT INFORMATION
  Report Type: Report from Study
  Country: JP (occurrence: JP)
  Receive Date: 20250717
  Receipt Date: 20250717
  Transmission Date: 20251021
  Serious: Yes (Other)
  Sender: ACCORD
  Company Number: JP-Accord-494580

PATIENT

DRUGS (2)
  1. GEMCITABINE [Suspect]
     Active Substance: GEMCITABINE
     Indication: Biliary neoplasm
  2. CISPLATIN [Suspect]
     Active Substance: CISPLATIN
     Indication: Biliary neoplasm

REACTIONS (1)
  - Anaphylactic reaction [Unknown]
